FAERS Safety Report 9145985 (Version 1)
Quarter: 2013Q1

REPORT INFORMATION
  Report Type: Spontaneous
  Country: JP (occurrence: JP)
  Receive Date: 20130307
  Receipt Date: 20130307
  Transmission Date: 20140127
  Serious: Yes (Hospitalization)
  Sender: FDA-Public Use
  Company Number: JP-ASTRAZENECA-2013SE14868

PATIENT
  Age: 29 Year
  Sex: Female

DRUGS (3)
  1. NEXIUM [Suspect]
     Dosage: DOSE UNKNOWN
     Route: 048
     Dates: start: 201301
  2. NEXIUM [Suspect]
     Dosage: DOSE UNKNOWN
     Route: 048
  3. ASPARA POTASSIUM [Concomitant]
     Dosage: DOSE UNKNOWN
     Route: 065

REACTIONS (2)
  - Enterocolitis [Unknown]
  - Hypoproteinaemia [Unknown]
